FAERS Safety Report 6023805-2 (Version None)
Quarter: 2008Q4

REPORT INFORMATION
  Report Type: 
  Country: None (occurrence: None)
  Receive Date: 20081223
  Receipt Date: 20081217
  Transmission Date: 20090506
  Serious: Yes (Hospitalization, Other)
  Sender: FDA-Public Use
  Company Number: 2008002916

PATIENT
  Age: 76 Year
  Sex: Male

DRUGS (7)
  1. ERLOTINIB / PLACEBO (ERLOTINIB HCL) (TABLET) (ERLOTINIB HCL) [Suspect]
     Indication: NON-SMALL CELL LUNG CANCER
     Dosage: (150 MG, QD) ,ORAL
     Route: 048
     Dates: start: 20080726
  2. FERROUS SULPHATE (FERROUS SULFATE) [Concomitant]
  3. WARFARIN SODIUM [Concomitant]
  4. DIGOXIN [Concomitant]
  5. RAMIPRIL [Concomitant]
  6. CARVEDILOL [Concomitant]
  7. LEVOTHYROXINE SODIUM [Concomitant]

REACTIONS (11)
  - BALANCE DISORDER [None]
  - CEREBRAL ATROPHY [None]
  - CONFUSIONAL STATE [None]
  - FALL [None]
  - FEMORAL NECK FRACTURE [None]
  - HYPERCALCAEMIA [None]
  - MALIGNANT NEOPLASM PROGRESSION [None]
  - METASTASES TO CENTRAL NERVOUS SYSTEM [None]
  - MOTOR DYSFUNCTION [None]
  - MUSCULAR WEAKNESS [None]
  - PERIPHERAL MOTOR NEUROPATHY [None]
